FAERS Safety Report 5133204-3 (Version None)
Quarter: 2006Q4

REPORT INFORMATION
  Report Type: 
  Country: None (occurrence: None)
  Receive Date: 20061018
  Receipt Date: 20061007
  Transmission Date: 20070319
  Serious: Yes (Other)
  Sender: FDA-Public Use
  Company Number: 14939

PATIENT
  Age: 62 Year
  Sex: Male

DRUGS (1)
  1. AMIODARONE HCL [Suspect]

REACTIONS (2)
  - GOITRE [None]
  - HYPERTHYROIDISM [None]
